FAERS Safety Report 9168203 (Version 4)
Quarter: 2013Q2

REPORT INFORMATION
  Report Type: Spontaneous
  Country: CH (occurrence: None)
  Receive Date: 20130226
  Receipt Date: 20130425
  Transmission Date: 20140414
  Serious: Yes (Other)
  Sender: FDA-Public Use
  Company Number: 2013034775

PATIENT
  Age: 65 Year
  Sex: Male

DRUGS (1)
  1. FXIII (FACTOR XIII CONCENTRATE (HUMAN)) [Suspect]
     Indication: HAEMORRHAGIC DIATHESIS

REACTIONS (5)
  - Fungal oesophagitis [None]
  - Deep vein thrombosis [None]
  - Pulmonary embolism [None]
  - Drug ineffective [None]
  - Subcutaneous haematoma [None]
